FAERS Safety Report 7597516-6 (Version None)
Quarter: 2011Q3

REPORT INFORMATION
  Report Type: 
  Country: None (occurrence: None)
  Receive Date: 20110708
  Receipt Date: 20110705
  Transmission Date: 20111222
  Serious: Yes (Death, Hospitalization)
  Sender: FDA-Public Use
  Company Number: PHHY2011TH59870

PATIENT
  Age: 85 Year
  Sex: Female

DRUGS (4)
  1. VITAMIN D [Concomitant]
  2. ZOLEDRONOC ACID [Suspect]
     Dosage: 5 MG, UNK
     Route: 042
     Dates: start: 20090101
  3. CALCIUM CARBONATE [Concomitant]
     Dosage: 600 MG, BID
  4. ZOLEDRONOC ACID [Suspect]
     Indication: OSTEOPOROSIS
     Dosage: 5 MG, UNK
     Route: 042
     Dates: start: 20080101

REACTIONS (5)
  - DEATH [None]
  - FALL [None]
  - BLOOD PRESSURE DECREASED [None]
  - HIP FRACTURE [None]
  - BONE DENSITY ABNORMAL [None]
